FAERS Safety Report 8218323 (Version 3)
Quarter: 2013Q2

REPORT INFORMATION
  Report Type: Spontaneous
  Country: US (occurrence: US)
  Receive Date: 20111101
  Receipt Date: 20130510
  Transmission Date: 20140414
  Serious: No
  Sender: FDA-Public Use
  Company Number: PHEH2011US07837

PATIENT
  Sex: Female

DRUGS (9)
  1. STALEVO [Suspect]
     Indication: PARKINSON^S DISEASE
     Dosage: 100 MG, 6QD
     Route: 048
     Dates: start: 20111017
  2. STALEVO [Suspect]
     Dosage: 75 MG, 5QD
     Route: 048
  3. SINEMET [Interacting]
  4. PROPRANOLOL [Concomitant]
     Dosage: 80 MG, QD
  5. SELEGILINE [Concomitant]
     Dosage: 5 MG
  6. REQUIP XL [Concomitant]
     Indication: PARKINSON^S DISEASE
     Dosage: 8 MG, BID
  7. HYDROCHLOROTHIAZIDE [Concomitant]
     Dosage: 12.5 MG, QD
  8. ADVIL [Concomitant]
     Dosage: UNK UKN, UNK
  9. REQUIP [Concomitant]

REACTIONS (8)
  - Freezing phenomenon [Unknown]
  - General physical health deterioration [Unknown]
  - Muscle rigidity [Unknown]
  - Wrong technique in drug usage process [Unknown]
  - Hallucination, visual [Unknown]
  - Drug effect decreased [Unknown]
  - Dysphagia [Unknown]
  - Drug ineffective [Unknown]
